FAERS Safety Report 10483825 (Version 1)
Quarter: 2014Q3

REPORT INFORMATION
  Report Type: Spontaneous
  Country: CH (occurrence: None)
  Receive Date: 20140926
  Receipt Date: 20140926
  Transmission Date: 20150326
  Serious: Yes (Congenital Anomaly, Other)
  Sender: FDA-Public Use
  Company Number: 7320863

PATIENT
  Sex: Male

DRUGS (1)
  1. LEVOTHYROXIN [Suspect]
     Active Substance: LEVOTHYROXINE
     Indication: HYPOTHYROIDISM
     Dosage: (PRODUCT TAKEN BY MOTHER)

REACTIONS (22)
  - Foetal growth restriction [None]
  - Ventricular septal defect [None]
  - Nipple disorder [None]
  - Premature baby [None]
  - Hypertelorism of orbit [None]
  - Neck deformity [None]
  - Apgar score low [None]
  - Neonatal tachypnoea [None]
  - Optic atrophy [None]
  - Dysmorphism [None]
  - Patent ductus arteriosus [None]
  - Finger deformity [None]
  - Laryngomalacia [None]
  - Cerebellar hypoplasia [None]
  - Feeding disorder neonatal [None]
  - Blood thyroid stimulating hormone increased [None]
  - Maternal drugs affecting foetus [None]
  - Caesarean section [None]
  - Atrial septal defect [None]
  - Micrognathia [None]
  - Neonatal respiratory distress syndrome [None]
  - Strabismus [None]
